FAERS Safety Report 7093008-1 (Version None)
Quarter: 2010Q4

REPORT INFORMATION
  Report Type: 
  Country: None (occurrence: None)
  Receive Date: 20101110
  Receipt Date: 20101105
  Transmission Date: 20110411
  Serious: Yes (Death, Other)
  Sender: FDA-Public Use
  Company Number: PHFR2010GB00908

PATIENT
  Sex: Male

DRUGS (6)
  1. CLOZARIL [Suspect]
     Indication: SCHIZOPHRENIA
     Dosage: UNK
     Dates: end: 20030601
  2. CLOZARIL [Suspect]
     Dosage: UNK
     Dates: start: 20031117
  3. CLOZARIL [Suspect]
     Dosage: 250 MG MANE, 350 MG NOCTE
     Route: 048
  4. CLOZARIL [Suspect]
     Dosage: 600 MG DAILY
     Dates: start: 20040201
  5. AMLODIPINE [Concomitant]
     Indication: HYPERTENSION
     Dosage: 5 MG MANE
  6. HYOSCINE HBR HYT [Concomitant]
     Dosage: 300 UG NOCTE

REACTIONS (12)
  - BLOOD CHOLESTEROL INCREASED [None]
  - BLOOD PRESSURE INCREASED [None]
  - BLOOD TRIGLYCERIDES INCREASED [None]
  - DEATH [None]
  - DISINHIBITION [None]
  - HYPERTENSION [None]
  - LIPIDS ABNORMAL [None]
  - MALNUTRITION [None]
  - OBESITY [None]
  - PSYCHOTIC DISORDER [None]
  - SCHIZOPHRENIA [None]
  - TACHYCARDIA [None]
